FAERS Safety Report 24138896 (Version 2)
Quarter: 2024Q3

REPORT INFORMATION
  Report Type: Spontaneous
  Country: IT (occurrence: IT)
  Receive Date: 20240726
  Receipt Date: 20240801
  Transmission Date: 20241017
  Serious: Yes (Death, Hospitalization, Other)
  Sender: SANOFI AVENTIS
  Company Number: IT-BRISTOL-MYERS SQUIBB COMPANY-2024-076507

PATIENT
  Age: 81 Year
  Sex: Male

DRUGS (2)
  1. ENOXAPARIN SODIUM [Suspect]
     Active Substance: ENOXAPARIN SODIUM
     Indication: Atrial fibrillation
     Dosage: UNK
  2. APIXABAN [Suspect]
     Active Substance: APIXABAN
     Indication: Atrial fibrillation
     Dosage: UNK

REACTIONS (14)
  - Cutaneous vasculitis [Fatal]
  - Petechiae [Fatal]
  - Multiple organ dysfunction syndrome [Fatal]
  - Anticoagulant-related nephropathy [Fatal]
  - Acute kidney injury [Fatal]
  - Haematuria [Fatal]
  - Oliguria [Fatal]
  - Oedema [Fatal]
  - Haemodynamic instability [Fatal]
  - Pulmonary alveolar haemorrhage [Unknown]
  - Arterial injury [Unknown]
  - Hypotension [Unknown]
  - Post procedural haemorrhage [Recovering/Resolving]
  - Anaemia [Unknown]
